FAERS Safety Report 8933491 (Version 1)
Quarter: 2012Q4

REPORT INFORMATION
  Report Type: 
  Country: US (occurrence: US)
  Receive Date: 20121129
  Receipt Date: 20121129
  Transmission Date: 20130627
  Serious: No
  Sender: FDA-Public Use
  Company Number: US-PFIZER INC-2012299415

PATIENT
  Age: 55 Year
  Sex: Male
  Weight: 92.97 kg

DRUGS (3)
  1. RELPAX [Suspect]
     Indication: MIGRAINE
     Dosage: 40 mg, 1x/day
     Route: 048
  2. TOPIRAMATE [Concomitant]
     Dosage: 25 mg, 1x/day
  3. PROPRANOLOL [Concomitant]
     Dosage: UNK, 2xday

REACTIONS (1)
  - Drug ineffective [Unknown]
